FAERS Safety Report 12570489 (Version 1)
Quarter: 2016Q3

REPORT INFORMATION
  Report Type: Other
  Country: US (occurrence: US)
  Receive Date: 20160719
  Receipt Date: 20160719
  Transmission Date: 20161109
  Serious: Yes (Other)
  Sender: FDA-Public Use
  Company Number: US-KADMON PHARMACEUTICALS, LLC-KAD201410-001278

PATIENT
  Sex: Female

DRUGS (4)
  1. SOVALDI [Suspect]
     Active Substance: SOFOSBUVIR
  2. VALTREX [Concomitant]
     Active Substance: VALACYCLOVIR HYDROCHLORIDE
     Indication: HERPES SIMPLEX
     Dates: start: 20141112, end: 20141115
  3. PEGINTRON [Suspect]
     Active Substance: PEGINTERFERON ALFA-2B
  4. RIBASPHERE RIBAPAK [Suspect]
     Active Substance: RIBAVIRIN

REACTIONS (3)
  - Maternal exposure before pregnancy [Unknown]
  - Herpes simplex [Unknown]
  - Exposure via partner [Unknown]

NARRATIVE: CASE EVENT DATE: 20140831
